FAERS Safety Report 9921314 (Version 1)
Quarter: 2014Q1

REPORT INFORMATION
  Report Type: Spontaneous
  Country: DE (occurrence: DE)
  Receive Date: 20140225
  Receipt Date: 20140225
  Transmission Date: 20141002
  Serious: Yes (Hospitalization)
  Sender: FDA-Public Use
  Company Number: DE-NAPPMUNDI-DEU-2014-0013719

PATIENT
  Age: 43 Year
  Sex: Female

DRUGS (1)
  1. MST [Suspect]
     Indication: NECK PAIN
     Route: 048

REACTIONS (4)
  - Enterobiasis [Unknown]
  - Secretion discharge [Unknown]
  - Local swelling [Unknown]
  - Inadequate analgesia [Unknown]
